FAERS Safety Report 25087107 (Version 6)
Quarter: 2025Q2

REPORT INFORMATION
  Report Type: Report from Study
  Country: KR (occurrence: KR)
  Receive Date: 20250318
  Receipt Date: 20250512
  Transmission Date: 20250717
  Serious: Yes (Hospitalization)
  Sender: ABBVIE
  Company Number: KR-ABBVIE-6175320

PATIENT
  Age: 23 Year
  Sex: Male
  Weight: 49 kg

DRUGS (35)
  1. RINVOQ [Suspect]
     Active Substance: UPADACITINIB
     Indication: Colitis ulcerative
     Route: 048
     Dates: start: 20250218
  2. ChoongWae NS [Concomitant]
     Indication: Colitis ulcerative
     Route: 042
     Dates: start: 20250214, end: 20250220
  3. ChoongWae NS [Concomitant]
     Indication: Colitis ulcerative
     Route: 042
     Dates: start: 20250305, end: 20250309
  4. Choongwae Normal Saline Inj. 100ml [Concomitant]
     Indication: Colitis ulcerative
     Route: 042
     Dates: start: 20250214, end: 20250220
  5. Choongwae Normal Saline Inj. 100ml [Concomitant]
     Indication: Colitis ulcerative
     Route: 042
     Dates: start: 20250305, end: 20250309
  6. Flunil [Concomitant]
     Indication: Endoscopy
     Dosage: INJ. 0.5MG
     Route: 042
     Dates: start: 20250306, end: 20250306
  7. Flunil [Concomitant]
     Indication: Endoscopy
     Dosage: INJ. 0.5MG
     Route: 042
     Dates: start: 20250324, end: 20250324
  8. REBAMIPIDE [Concomitant]
     Active Substance: REBAMIPIDE
     Indication: Gastrooesophageal reflux disease
     Route: 048
     Dates: start: 20250219
  9. Polybutine [Concomitant]
     Indication: Colitis ulcerative
     Dosage: SR TAB. 300MG
     Route: 048
     Dates: start: 20250211
  10. SHINGRIX [Concomitant]
     Active Substance: RECOMBINANT VARICELLA ZOSTER VIRUS (VZV) GLYCOPROTEIN E
     Indication: Prophylaxis
     Dosage: INJECTION
     Route: 058
     Dates: start: 20250326, end: 20250326
  11. Noltec [Concomitant]
     Indication: Gastrooesophageal reflux disease
     Route: 048
     Dates: start: 20250219, end: 20250309
  12. Bukwang midazolam [Concomitant]
     Indication: Endoscopy
     Route: 042
     Dates: start: 20250217, end: 20250217
  13. Bukwang midazolam [Concomitant]
     Indication: Endoscopy
     Route: 042
     Dates: start: 20250306, end: 20250306
  14. Bukwang midazolam [Concomitant]
     Indication: Endoscopy
     Route: 042
     Dates: start: 20250324, end: 20250324
  15. Plasma Solution A [Concomitant]
     Indication: Prophylaxis
     Route: 042
     Dates: start: 20250214, end: 20250219
  16. Plasma Solution A [Concomitant]
     Indication: Prophylaxis
     Route: 042
     Dates: start: 20250305, end: 20250311
  17. Solondo [Concomitant]
     Indication: Colitis ulcerative
     Route: 048
     Dates: start: 20250306, end: 20250312
  18. Solondo [Concomitant]
     Indication: Colitis ulcerative
     Route: 048
     Dates: start: 20250303, end: 20250305
  19. Solondo [Concomitant]
     Indication: Colitis ulcerative
     Route: 048
     Dates: start: 20250227, end: 20250302
  20. Solondo [Concomitant]
     Indication: Colitis ulcerative
     Route: 048
     Dates: start: 20250220, end: 20250226
  21. Solondo [Concomitant]
     Indication: Colitis ulcerative
     Route: 048
     Dates: start: 20250322
  22. Solondo [Concomitant]
     Indication: Colitis ulcerative
     Route: 048
     Dates: start: 20250321, end: 20250321
  23. Solondo [Concomitant]
     Indication: Colitis ulcerative
     Route: 048
     Dates: start: 20250313, end: 20250319
  24. Solondo [Concomitant]
     Indication: Colitis ulcerative
     Route: 048
     Dates: start: 20250320, end: 20250320
  25. Kyongbo ceftriaxone sodium [Concomitant]
     Indication: Colitis ulcerative
     Route: 042
     Dates: start: 20250306, end: 20250309
  26. Kyongbo ceftriaxone sodium [Concomitant]
     Indication: Colitis ulcerative
     Route: 042
     Dates: start: 20250218, end: 20250220
  27. Fotagel [Concomitant]
     Indication: Gastrooesophageal reflux disease
     Route: 048
     Dates: start: 20250211, end: 20250224
  28. TEGOPRAZAN [Concomitant]
     Active Substance: TEGOPRAZAN
     Indication: Gastric mucosa erythema
     Route: 048
     Dates: start: 20250317
  29. Endocol [Concomitant]
     Indication: Endoscopy
     Route: 048
     Dates: start: 20250306, end: 20250306
  30. Alpit [Concomitant]
     Indication: Gastrooesophageal reflux disease
     Route: 042
     Dates: start: 20250306, end: 20250306
  31. FLOSPAN D [Concomitant]
     Indication: Colitis ulcerative
     Route: 048
     Dates: start: 20250211, end: 20250316
  32. HERBALS [Concomitant]
     Active Substance: HERBALS
     Indication: Gastric mucosa erythema
     Route: 048
     Dates: start: 20250317
  33. K-CAB Tab. 50mg [Concomitant]
     Indication: Gastritis
     Route: 048
     Dates: start: 20250317
  34. Meccol [Concomitant]
     Indication: Gastric mucosa erythema
     Route: 042
     Dates: start: 20250327, end: 20250327
  35. Bioflor [Concomitant]
     Indication: Prophylaxis
     Route: 048
     Dates: start: 20250224, end: 20250224

REACTIONS (4)
  - Clostridium difficile infection [Recovered/Resolved]
  - Foreign body in gastrointestinal tract [Recovered/Resolved]
  - Acne [Recovering/Resolving]
  - Medication error [Recovered/Resolved]

NARRATIVE: CASE EVENT DATE: 20250201
